FAERS Safety Report 5406712-5 (Version None)
Quarter: 2007Q3

REPORT INFORMATION
  Report Type: 
  Country: None (occurrence: None)
  Receive Date: 20070803
  Receipt Date: 20070803
  Transmission Date: 20080115
  Serious: Yes (Life-Threatening, Hospitalization)
  Sender: FDA-Public Use
  Company Number: None

PATIENT
  Age: 69 Year
  Sex: Female
  Weight: 76.6579 kg

DRUGS (1)
  1. REMICADE [Suspect]
     Indication: CROHN'S DISEASE
     Dosage: 385 MG I.V. OVER 2 HOURS EVERY 8 WEEKS
     Dates: start: 20070706

REACTIONS (3)
  - INFUSION RELATED REACTION [None]
  - PRURITUS GENERALISED [None]
  - URTICARIA [None]
